FAERS Safety Report 8892014 (Version 1)
Quarter: 2012Q4

REPORT INFORMATION
  Report Type: 
  Country: US (occurrence: US)
  Receive Date: 20121108
  Receipt Date: 20121108
  Transmission Date: 20130627
  Serious: No
  Sender: FDA-Public Use
  Company Number: US-PFIZER INC-2012277274

PATIENT
  Sex: Female

DRUGS (1)
  1. CELEBREX [Suspect]
     Indication: MOUNTAIN SICKNESS ACUTE

REACTIONS (2)
  - Off label use [Recovered/Resolved]
  - Rash [Recovered/Resolved]
